FAERS Safety Report 4781393-2 (Version None)
Quarter: 2005Q3

REPORT INFORMATION
  Report Type: 
  Country: None (occurrence: None)
  Receive Date: 20050928
  Receipt Date: 20050913
  Transmission Date: 20060218
  Serious: Yes (Hospitalization)
  Sender: FDA-Public Use
  Company Number: GB-MERCK-0509GBR00095

PATIENT
  Age: 56 Year
  Sex: Male

DRUGS (12)
  1. SIMVASTATIN [Suspect]
     Route: 048
  2. SIMVASTATIN [Suspect]
     Route: 048
  3. ASPIRIN [Concomitant]
     Route: 065
  4. AMLODIPINE BESYLATE [Concomitant]
     Route: 065
  5. FERROUS SULFATE [Concomitant]
     Route: 065
  6. LANSOPRAZOLE [Concomitant]
     Route: 065
  7. CLARITHROMYCIN [Suspect]
     Indication: PNEUMONIA
     Route: 065
  8. CEFTRIAXONE SODIUM [Concomitant]
     Indication: PNEUMONIA
     Route: 065
  9. AMIODARONE [Suspect]
     Route: 042
  10. AMIODARONE [Suspect]
     Route: 048
  11. AMIODARONE [Suspect]
     Route: 048
  12. AMIODARONE [Suspect]
     Route: 048

REACTIONS (2)
  - DRUG INTERACTION [None]
  - MYOSITIS [None]
